FAERS Safety Report 5700520-3 (Version None)
Quarter: 2008Q2

REPORT INFORMATION
  Report Type: 
  Country: None (occurrence: None)
  Receive Date: 20080410
  Receipt Date: 20080326
  Transmission Date: 20081010
  Serious: Yes (Other)
  Sender: FDA-Public Use
  Company Number: JP-PFIZER INC-2008029467

PATIENT
  Sex: Male
  Weight: 54 kg

DRUGS (5)
  1. CAMPTO [Suspect]
     Indication: NON-SMALL CELL LUNG CANCER
     Dosage: DAILY DOSE:156MG
     Route: 042
     Dates: start: 20050719, end: 20051018
  2. GEMZAR [Suspect]
     Indication: NON-SMALL CELL LUNG CANCER
     Dosage: DAILY DOSE:1560MG
     Route: 042
     Dates: start: 20050719, end: 20051018
  3. FLUTIDE [Concomitant]
     Indication: ASTHMA
     Route: 055
  4. SEREVENT [Concomitant]
     Indication: ASTHMA
     Route: 055
  5. SULTANOL [Concomitant]
     Indication: ASTHMA
     Route: 055

REACTIONS (1)
  - NEUTROPHIL COUNT DECREASED [None]
